FAERS Safety Report 4374426-9 (Version None)
Quarter: 2004Q2

REPORT INFORMATION
  Report Type: 
  Country: None (occurrence: None)
  Receive Date: 20040602
  Receipt Date: 20040319
  Transmission Date: 20050107
  Serious: No
  Sender: FDA-Public Use
  Company Number: 200416487BWH

PATIENT
  Age: 59 Year
  Sex: Male
  Weight: 168.7381 kg

DRUGS (10)
  1. LEVITRA [Suspect]
     Indication: ERECTILE DYSFUNCTION
     Dosage: 10 MG, TOTAL DAILY, ORAL; 20 MG, TOTAL DAILY, ORAL
     Route: 048
     Dates: start: 20040201
  2. LEVITRA [Suspect]
     Indication: ERECTILE DYSFUNCTION
     Dosage: 10 MG, TOTAL DAILY, ORAL; 20 MG, TOTAL DAILY, ORAL
     Route: 048
     Dates: start: 20040201
  3. METFORMIN HCL [Concomitant]
  4. GLYBURIDE [Concomitant]
  5. VITAMIN C [Concomitant]
  6. ALTACE [Concomitant]
  7. TOPAMAX [Concomitant]
  8. LORATADINE [Concomitant]
  9. ASPIRIN [Concomitant]
  10. VIAGRA [Concomitant]

REACTIONS (2)
  - ERECTILE DYSFUNCTION [None]
  - HEADACHE [None]
